FAERS Safety Report 24313183 (Version 1)
Quarter: 2024Q3

REPORT INFORMATION
  Report Type: Report from Study
  Country: CA (occurrence: CA)
  Receive Date: 20240912
  Receipt Date: 20240912
  Transmission Date: 20241016
  Serious: No
  Sender: ROCHE
  Company Number: CA-ROCHE-10000067058

PATIENT
  Sex: Female

DRUGS (1)
  1. OCREVUS [Suspect]
     Active Substance: OCRELIZUMAB
     Indication: Relapsing-remitting multiple sclerosis
     Dosage: 300 MG AT DAY 0 AND 14, THEN 600 MG EVERY 6 MONTHS
     Route: 042
     Dates: start: 20240822

REACTIONS (10)
  - Urticaria [Recovering/Resolving]
  - Palpitations [Unknown]
  - Insomnia [Unknown]
  - Paraesthesia [Unknown]
  - Abdominal pain upper [Recovering/Resolving]
  - Eye swelling [Unknown]
  - Hypoaesthesia oral [Unknown]
  - Gastrooesophageal reflux disease [Recovered/Resolved]
  - Influenza [Not Recovered/Not Resolved]
  - Rectal spasm [Recovered/Resolved]
